FAERS Safety Report 15760626 (Version 4)
Quarter: 2019Q1

REPORT INFORMATION
  Report Type: Spontaneous
  Country: US (occurrence: US)
  Receive Date: 20181226
  Receipt Date: 20190312
  Transmission Date: 20190417
  Serious: No
  Sender: FDA-Public Use
  Company Number: US-PFIZER INC-2018525503

PATIENT
  Age: 58 Year
  Sex: Female

DRUGS (2)
  1. XELJANZ XR [Suspect]
     Active Substance: TOFACITINIB CITRATE
     Dosage: 11 MG, UNK
  2. XELJANZ XR [Suspect]
     Active Substance: TOFACITINIB CITRATE
     Dosage: 11 MG, UNK
     Dates: start: 201810

REACTIONS (7)
  - Nasopharyngitis [Unknown]
  - Gastroenteritis viral [Unknown]
  - Influenza [Unknown]
  - Pain in extremity [Unknown]
  - Exfoliative rash [Unknown]
  - Sinusitis [Unknown]
  - Disturbance in attention [Unknown]
